FAERS Safety Report 23667520 (Version 1)
Quarter: 2024Q1

REPORT INFORMATION
  Report Type: Spontaneous
  Country: FR (occurrence: FR)
  Receive Date: 20240325
  Receipt Date: 20240325
  Transmission Date: 20240410
  Serious: Yes (Hospitalization, Other)
  Sender: FDA-Public Use
  Company Number: None

PATIENT
  Age: 83 Year
  Sex: Female

DRUGS (14)
  1. BACTRIM [Suspect]
     Active Substance: SULFAMETHOXAZOLE\TRIMETHOPRIM
     Indication: Product used for unknown indication
     Dosage: 1 DF (0.4286), THRICE WEEKLY
     Route: 048
     Dates: start: 20130704, end: 20130819
  2. CIPROFLOXACIN [Suspect]
     Active Substance: CIPROFLOXACIN
     Indication: Pyrexia
     Dosage: 500 MILLIGRAM, QD
     Route: 048
     Dates: start: 20130818, end: 20130819
  3. BENDAMUSTINE HYDROCHLORIDE [Suspect]
     Active Substance: BENDAMUSTINE HYDROCHLORIDE
     Indication: Non-Hodgkin^s lymphoma
     Dosage: 90 MG/M2, CYCLIC (2 IN 1 MONTH)
     Route: 042
     Dates: start: 20130731, end: 20130801
  4. BENDAMUSTINE HYDROCHLORIDE [Suspect]
     Active Substance: BENDAMUSTINE HYDROCHLORIDE
     Indication: B-cell lymphoma
     Dosage: 90 MG/M2, CYCLIC (2 IN 1 MONTH)
     Route: 042
     Dates: start: 20130703
  5. MABTHERA [Suspect]
     Active Substance: RITUXIMAB
     Indication: B-cell lymphoma
     Dosage: 750 MILLIGRAM/SQ. METER, QD
     Route: 042
     Dates: start: 20130703
  6. MABTHERA [Suspect]
     Active Substance: RITUXIMAB
     Indication: Non-Hodgkin^s lymphoma
     Dosage: 750 MILLIGRAM/SQ. METER, QD
     Route: 042
     Dates: start: 20130731, end: 20130731
  7. METHYLPREDNISOLONE [Suspect]
     Active Substance: METHYLPREDNISOLONE
     Indication: B-cell lymphoma
     Dosage: 40 MILLIGRAM
     Route: 065
     Dates: start: 201307
  8. METHYLPREDNISOLONE [Suspect]
     Active Substance: METHYLPREDNISOLONE
     Indication: Non-Hodgkin^s lymphoma
     Dosage: UNK
     Route: 065
  9. MOTILIUM [Suspect]
     Active Substance: DOMPERIDONE
     Indication: Product used for unknown indication
     Dosage: 1000 MILLIGRAM, QD
     Route: 065
     Dates: start: 20130814, end: 20130815
  10. CEFUROXIME SODIUM [Suspect]
     Active Substance: CEFUROXIME SODIUM
     Indication: Pyrexia
     Dosage: 500 MILLIGRAM
     Route: 065
     Dates: start: 20130818
  11. AERIUS (DESLORATADINE) [Concomitant]
     Active Substance: DESLORATADINE
     Indication: Face oedema
     Dosage: UNKNOWN
     Route: 065
     Dates: start: 20130802
  12. ATARAX [Concomitant]
     Active Substance: HYDROXYZINE HYDROCHLORIDE
     Indication: Product used for unknown indication
     Dosage: 50 MILLIGRAM
     Route: 065
  13. FUROSEMIDE [Concomitant]
     Active Substance: FUROSEMIDE
     Indication: Product used for unknown indication
     Dosage: UNKNOWN
     Route: 065
     Dates: start: 20130801
  14. TAGAMET [Concomitant]
     Active Substance: CIMETIDINE
     Indication: Product used for unknown indication
     Dosage: 800 MILLIGRAM
     Route: 065

REACTIONS (6)
  - Pancytopenia [Recovering/Resolving]
  - Leukopenia [Unknown]
  - Toxic skin eruption [Recovered/Resolved]
  - Rash maculo-papular [Unknown]
  - Febrile neutropenia [Recovering/Resolving]
  - Agranulocytosis [Recovered/Resolved]

NARRATIVE: CASE EVENT DATE: 20130813
